FAERS Safety Report 12156412 (Version 3)
Quarter: 2021Q3

REPORT INFORMATION
  Report Type: Report from Study
  Country: US (occurrence: US)
  Receive Date: 20160307
  Receipt Date: 20210709
  Transmission Date: 20211014
  Serious: Yes (Hospitalization, Other)
  Sender: FDA-Public Use
  Company Number: US-PFIZER INC-2016125403

PATIENT

DRUGS (2)
  1. VERAPAMIL HCL [Suspect]
     Active Substance: VERAPAMIL HYDROCHLORIDE
     Dosage: FOLLOWED BY 2 CONSECUTIVE DOSES WITHIN A SIMILAR DOSE RANGE
  2. VERAPAMIL HCL [Suspect]
     Active Substance: VERAPAMIL HYDROCHLORIDE
     Indication: SUPRAVENTRICULAR TACHYCARDIA
     Dosage: INITIAL DOSE OF 2.5?5.0 MG GIVEN OVER 2 MINUTES
     Route: 042

REACTIONS (1)
  - Ventricular fibrillation [Recovered/Resolved]
